FAERS Safety Report 6503698-7 (Version None)
Quarter: 2009Q4

REPORT INFORMATION
  Report Type: 
  Country: None (occurrence: None)
  Receive Date: 20091217
  Receipt Date: 20091203
  Transmission Date: 20100525
  Serious: Yes (Hospitalization)
  Sender: FDA-Public Use
  Company Number: US-ROCHE-674783

PATIENT
  Sex: Male

DRUGS (12)
  1. BEVACIZUMAB [Suspect]
     Indication: GLIOBLASTOMA
     Dosage: FREQ: Q2 WEEKS
     Route: 042
     Dates: start: 20091007, end: 20091123
  2. ERLOTINIB [Suspect]
     Indication: GLIOBLASTOMA
     Route: 048
     Dates: start: 20090925, end: 20091203
  3. TEMOZOLOMIDE [Suspect]
     Indication: GLIOBLASTOMA
     Route: 048
     Dates: start: 20090925, end: 20091127
  4. KEPPRA [Concomitant]
     Dates: start: 20090911
  5. PRILOSEC [Concomitant]
     Dates: start: 20090911
  6. TYLENOL (CAPLET) [Concomitant]
     Dates: start: 20090911
  7. COLACE [Concomitant]
     Dates: start: 20091002
  8. BACTRIM DS [Concomitant]
     Dates: start: 20090923
  9. DIOVAN [Concomitant]
     Dates: start: 20091113
  10. MINOCYCLINE HCL [Concomitant]
     Dates: start: 20091019
  11. DECADRON [Concomitant]
     Dates: start: 20091123
  12. MEGACE [Concomitant]
     Dates: start: 20091124

REACTIONS (1)
  - PNEUMOTHORAX [None]
